FAERS Safety Report 6626030-7 (Version None)
Quarter: 2010Q1

REPORT INFORMATION
  Report Type: 
  Country: None (occurrence: None)
  Receive Date: 20100309
  Receipt Date: 20100309
  Transmission Date: 20100710
  Serious: Yes (Hospitalization)
  Sender: FDA-Public Use
  Company Number: None

PATIENT
  Age: 81 Year
  Sex: Male
  Weight: 88 kg

DRUGS (1)
  1. TRAMADOL [Suspect]
     Dosage: 100 MG PRN PO
     Route: 048
     Dates: start: 20090908, end: 20091009

REACTIONS (2)
  - CONFUSIONAL STATE [None]
  - FALL [None]
